FAERS Safety Report 20651841 (Version 7)
Quarter: 2022Q3

REPORT INFORMATION
  Report Type: Report from Study
  Country: US (occurrence: US)
  Receive Date: 20220330
  Receipt Date: 20220726
  Transmission Date: 20221026
  Serious: No
  Sender: FDA-Public Use
  Company Number: US-NOVARTISTESTPH-NVSC2022US071318

PATIENT
  Sex: Male

DRUGS (1)
  1. ENTRESTO [Suspect]
     Active Substance: SACUBITRIL\VALSARTAN
     Indication: Product used for unknown indication
     Dosage: 0.5 DOSAGE FORM, BID
     Route: 048

REACTIONS (5)
  - Nasopharyngitis [Unknown]
  - Aphonia [Unknown]
  - Dyspnoea [Unknown]
  - SARS-CoV-2 test positive [Unknown]
  - Wrong technique in product usage process [Not Recovered/Not Resolved]
